FAERS Safety Report 21809803 (Version 3)
Quarter: 2023Q1

REPORT INFORMATION
  Report Type: Report from Study
  Country: IN (occurrence: IN)
  Receive Date: 20230103
  Receipt Date: 20230203
  Transmission Date: 20230417
  Serious: Yes (Other)
  Sender: FDA-Public Use
  Company Number: IN-002147023-NVSC2022IN154149

PATIENT
  Age: 42 Year
  Sex: Male

DRUGS (7)
  1. SECUKINUMAB [Suspect]
     Active Substance: SECUKINUMAB
     Indication: Psoriasis
     Dosage: 300 MG, QMO
     Route: 058
  2. SECUKINUMAB [Suspect]
     Active Substance: SECUKINUMAB
     Dosage: UNK
     Route: 065
     Dates: start: 20221003
  3. SECUKINUMAB [Suspect]
     Active Substance: SECUKINUMAB
     Dosage: 300 MG, QMO (LAST INJECTION)
     Route: 058
     Dates: start: 20221229
  4. FLUTICASONE PROPIONATE [Concomitant]
     Active Substance: FLUTICASONE PROPIONATE
     Indication: Product used for unknown indication
     Dosage: UNK
     Route: 065
  5. NADIBACT [Concomitant]
     Indication: Product used for unknown indication
     Dosage: UNK (IN COMBINATION WITH FLUTIVATE AT BED TIME AT GROIN FOR 10 DAYS)
     Route: 065
  6. TARICH [Concomitant]
     Indication: Product used for unknown indication
     Dosage: UNK (IN COMBINATION WITH KETOMASTER SHAMPOO TWICE DAILY)
     Route: 065
  7. CETAPHIL DAILY FACIAL MOISTURIZER WITH SUNCREEN SPF 50 [Concomitant]
     Active Substance: OCTINOXATE\OCTISALATE\OCTOCRYLENE\OXYBENZONE\TITANIUM DIOXIDE
     Indication: Product used for unknown indication
     Dosage: UNK (DAY AND NIGHT)
     Route: 065

REACTIONS (5)
  - Hepatitis E [Unknown]
  - Jaundice [Unknown]
  - Injection site pain [Unknown]
  - COVID-19 [Unknown]
  - Inappropriate schedule of product administration [Unknown]

NARRATIVE: CASE EVENT DATE: 20220701
